FAERS Safety Report 5737491-X (Version None)
Quarter: 2008Q2

REPORT INFORMATION
  Report Type: 
  Country: None (occurrence: None)
  Receive Date: 20080514
  Receipt Date: 20080506
  Transmission Date: 20081010
  Serious: Yes (Life-Threatening, Hospitalization)
  Sender: FDA-Public Use
  Company Number: GB-TEVA-171392ISR

PATIENT
  Age: 88 Year
  Sex: Female

DRUGS (1)
  1. SIMVASTATIN [Suspect]
     Indication: ANGINA PECTORIS
     Route: 048
     Dates: start: 20050101, end: 20050101

REACTIONS (1)
  - ACUTE MYOCARDIAL INFARCTION [None]
